FAERS Safety Report 8920283 (Version 1)
Quarter: 2012Q4

REPORT INFORMATION
  Report Type: 
  Country: BR (occurrence: BR)
  Receive Date: 20121122
  Receipt Date: 20121122
  Transmission Date: 20130627
  Serious: Yes (Hospitalization)
  Sender: FDA-Public Use
  Company Number: BR-ROCHE-1156722

PATIENT
  Sex: Female
  Weight: 94 kg

DRUGS (4)
  1. RIVOTRIL [Suspect]
     Indication: SLEEP DISORDER
     Route: 048
  2. FLUOXETINE [Concomitant]
     Indication: ANXIETY
     Route: 048
  3. LOSARTAN [Concomitant]
     Indication: HYPERTENSION
     Route: 065
  4. HYDROCHLOROTHIAZIDE [Concomitant]
     Indication: HYPERTENSION
     Route: 065

REACTIONS (2)
  - Joint injury [Recovered/Resolved]
  - Constipation [Recovering/Resolving]
